FAERS Safety Report 17213859 (Version 1)
Quarter: 2019Q4

REPORT INFORMATION
  Report Type: Spontaneous
  Country: JP (occurrence: JP)
  Receive Date: 20191230
  Receipt Date: 20191230
  Transmission Date: 20200122
  Serious: Yes (Other)
  Sender: FDA-Public Use
  Company Number: JP-HQ SPECIALTY-JP-2019INT000315

PATIENT
  Age: 37 Year
  Sex: Female

DRUGS (7)
  1. DEXMEDETOMIDINE HYDROCHLORIDE. [Suspect]
     Active Substance: DEXMEDETOMIDINE HYDROCHLORIDE
     Indication: SEDATIVE THERAPY
     Dosage: 0.2 ?G/KG, 1 MIN
     Route: 065
     Dates: start: 201807
  2. MIDAZOLAM [Concomitant]
     Active Substance: MIDAZOLAM HYDROCHLORIDE
     Indication: GENERAL ANAESTHESIA
     Dosage: 1.5 MG, UNK
     Route: 065
     Dates: start: 201807
  3. DESFLURANE. [Concomitant]
     Active Substance: DESFLURANE
     Indication: MAINTENANCE OF ANAESTHESIA
     Dosage: UNK
     Route: 065
     Dates: start: 201807
  4. REMIFENTANIL HYDROCHLORIDE. [Concomitant]
     Active Substance: REMIFENTANIL HYDROCHLORIDE
     Indication: MAINTENANCE OF ANAESTHESIA
     Dosage: 2 ?G/KG, 1 MIN
     Route: 065
     Dates: start: 201807
  5. FENTANYL CITRATE. [Concomitant]
     Active Substance: FENTANYL CITRATE
     Indication: GENERAL ANAESTHESIA
     Dosage: 100 ?G, UNK
     Route: 065
     Dates: start: 201807
  6. PROPOFOL. [Concomitant]
     Active Substance: PROPOFOL
     Indication: GENERAL ANAESTHESIA
     Dosage: 50 MG, UNK
     Route: 065
     Dates: start: 201807
  7. ROCURONIUM BROMIDE. [Concomitant]
     Active Substance: ROCURONIUM BROMIDE
     Indication: GENERAL ANAESTHESIA
     Dosage: 30 MG, UNK
     Route: 065
     Dates: start: 201807

REACTIONS (4)
  - Overdose [Unknown]
  - Sinus arrest [Recovered/Resolved]
  - Bradycardia [Recovered/Resolved]
  - Trigemino-cardiac reflex [Unknown]

NARRATIVE: CASE EVENT DATE: 201807
